FAERS Safety Report 7334264-1 (Version None)
Quarter: 2011Q1

REPORT INFORMATION
  Report Type: 
  Country: None (occurrence: None)
  Receive Date: 20110302
  Receipt Date: 20110302
  Transmission Date: 20110831
  Serious: Yes (Life-Threatening, Hospitalization, Disabling)
  Sender: FDA-Public Use
  Company Number: None

PATIENT
  Age: 73 Year
  Sex: Female
  Weight: 113.3993 kg

DRUGS (3)
  1. EPINEPHRINE [Concomitant]
  2. CIPRO [Suspect]
     Indication: URINARY TRACT INFECTION
     Dates: start: 20110225, end: 20110225
  3. SOLU-MEDROL [Concomitant]

REACTIONS (6)
  - MOANING [None]
  - UNRESPONSIVE TO STIMULI [None]
  - SPEECH DISORDER [None]
  - SWELLING FACE [None]
  - FLUSHING [None]
  - THROAT TIGHTNESS [None]
